FAERS Safety Report 8932099 (Version 1)
Quarter: 2012Q4

REPORT INFORMATION
  Report Type: 
  Country: NL (occurrence: NL)
  Receive Date: 20121128
  Receipt Date: 20121128
  Transmission Date: 20130627
  Serious: Yes (Hospitalization)
  Sender: FDA-Public Use
  Company Number: NL-JNJFOC-20121109507

PATIENT
  Age: 20 Year
  Sex: Male

DRUGS (1)
  1. CONCERTA [Suspect]
     Indication: PRODUCT USED FOR UNKNOWN INDICATION
     Route: 048
     Dates: start: 2009

REACTIONS (4)
  - Loss of consciousness [Unknown]
  - Alcohol poisoning [Unknown]
  - Hypoglycaemia [Unknown]
  - Treatment noncompliance [Unknown]
